FAERS Safety Report 5605558-2 (Version None)
Quarter: 2008Q1

REPORT INFORMATION
  Report Type: 
  Country: None (occurrence: None)
  Receive Date: 20080129
  Receipt Date: 20080121
  Transmission Date: 20080703
  Serious: Yes (Hospitalization)
  Sender: FDA-Public Use
  Company Number: US-JNJFOC-20080105887

PATIENT
  Age: 57 Year
  Sex: Male
  Weight: 108.86 kg

DRUGS (4)
  1. LEVAQUIN [Suspect]
     Indication: BRONCHITIS
     Route: 048
  2. LEVAQUIN [Suspect]
     Route: 042
  3. COUGH MEDICINE [Concomitant]
     Indication: COUGH
     Route: 048
  4. STEROIDS [Concomitant]
     Indication: BRONCHITIS
     Route: 048

REACTIONS (11)
  - ANOREXIA [None]
  - ASTHENIA [None]
  - DEHYDRATION [None]
  - HYPERACUSIS [None]
  - HYPOVENTILATION [None]
  - MUSCLE TIGHTNESS [None]
  - NAUSEA [None]
  - PARAESTHESIA [None]
  - PARANOIA [None]
  - STOMACH DISCOMFORT [None]
  - VISION BLURRED [None]
